FAERS Safety Report 10163680 (Version 2)
Quarter: 2014Q2

REPORT INFORMATION
  Report Type: Report from Study
  Country: DE (occurrence: NL)
  Receive Date: 20140509
  Receipt Date: 20140527
  Transmission Date: 20141212
  Serious: Yes (Death)
  Sender: FDA-Public Use
  Company Number: DE-ACTELION-A-US2010-98290

PATIENT
  Age: 75 Year
  Sex: Female

DRUGS (1)
  1. VENTAVIS [Suspect]
     Indication: PULMONARY ARTERIAL HYPERTENSION
     Dosage: 5 TO 6 AMPOULES DAILY
     Route: 055
     Dates: start: 20090909, end: 20100408

REACTIONS (4)
  - Pulmonary arterial hypertension [Fatal]
  - Gastroenteritis [Unknown]
  - Feeling abnormal [Unknown]
  - Weight decreased [Unknown]
